FAERS Safety Report 15801295 (Version 2)
Quarter: 2019Q1

REPORT INFORMATION
  Report Type: Spontaneous
  Country: DE (occurrence: DE)
  Receive Date: 20190109
  Receipt Date: 20190111
  Transmission Date: 20190417
  Serious: Yes (Hospitalization, Other)
  Sender: FDA-Public Use
  Company Number: DE-AMGEN-DEUNI2019002474

PATIENT
  Age: 63 Year
  Sex: Male
  Weight: 81 kg

DRUGS (9)
  1. MCP [Concomitant]
     Active Substance: METOCLOPRAMIDE HYDROCHLORIDE
     Indication: NAUSEA
     Dosage: UNK, AS NECESSARY
     Dates: start: 20181126, end: 20181128
  2. CARFILZOMIB [Suspect]
     Active Substance: CARFILZOMIB
     Dosage: 416 MG, QCY CYCLICAL
     Route: 042
     Dates: start: 20181130, end: 20181130
  3. DEXAMETHASONE. [Suspect]
     Active Substance: DEXAMETHASONE
     Dosage: 40 MG, QCY CYCLICAL
     Route: 048
     Dates: start: 20181130
  4. LENALIDOMIDE [Suspect]
     Active Substance: LENALIDOMIDE
     Indication: PLASMA CELL MYELOMA
     Dosage: 25 MG, QCY CYCLICAL
     Route: 048
     Dates: start: 20181114, end: 20181114
  5. DEXAMETHASONE. [Suspect]
     Active Substance: DEXAMETHASONE
     Indication: PLASMA CELL MYELOMA
     Dosage: 40 MG, QCY CYCLICAL
     Route: 048
     Dates: start: 20181114, end: 20181114
  6. ISATUXIMAB [Suspect]
     Active Substance: ISATUXIMAB
     Dosage: 852 MG, QCY CYCLICAL
     Route: 042
     Dates: start: 20181129, end: 20181129
  7. ISATUXIMAB [Suspect]
     Active Substance: ISATUXIMAB
     Indication: PLASMA CELL MYELOMA
     Dosage: 852 MG, QCY CYCLICAL
     Route: 042
     Dates: start: 20181114, end: 20181114
  8. LENALIDOMIDE [Suspect]
     Active Substance: LENALIDOMIDE
     Dosage: 25 MG, QCY CYCLICAL
     Route: 048
     Dates: start: 20181204
  9. CARFILZOMIB [Suspect]
     Active Substance: CARFILZOMIB
     Indication: PLASMA CELL MYELOMA
     Dosage: 416 MG, QCY CYCLICAL
     Route: 042
     Dates: start: 20181114, end: 20181114

REACTIONS (2)
  - Cystitis [Recovered/Resolved]
  - Syncope [Recovered/Resolved]

NARRATIVE: CASE EVENT DATE: 20181204
